FAERS Safety Report 9798799 (Version 3)
Quarter: 2015Q3

REPORT INFORMATION
  Report Type: Spontaneous
  Country: US (occurrence: US)
  Receive Date: 20140106
  Receipt Date: 20150806
  Transmission Date: 20151125
  Serious: No
  Sender: FDA-Public Use
  Company Number: US-GILEAD-2010-0029970

PATIENT
  Age: 74 Year
  Sex: Male
  Weight: 104 kg

DRUGS (17)
  1. VENTOLIN HFA [Concomitant]
     Active Substance: ALBUTEROL SULFATE
  2. FINACEA [Concomitant]
     Active Substance: AZELAIC ACID
  3. CALCIUM CITRATE/ERGOCALCIFEROL [Concomitant]
  4. ASPIRIN. [Concomitant]
     Active Substance: ASPIRIN
  5. TEKTURNA HCT [Concomitant]
     Active Substance: ALISKIREN HEMIFUMARATE\HYDROCHLOROTHIAZIDE
  6. ZESTRIL [Concomitant]
     Active Substance: LISINOPRIL
  7. PLAVIX [Concomitant]
     Active Substance: CLOPIDOGREL BISULFATE
  8. COREG [Concomitant]
     Active Substance: CARVEDILOL
  9. LUMIGAN [Concomitant]
     Active Substance: BIMATOPROST
  10. COUMADIN [Concomitant]
     Active Substance: WARFARIN SODIUM
  11. CARDIZEM [Concomitant]
     Active Substance: DILTIAZEM HYDROCHLORIDE
  12. SYMBICORT [Concomitant]
     Active Substance: BUDESONIDE\FORMOTEROL FUMARATE DIHYDRATE
  13. ALLOPURINOL. [Concomitant]
     Active Substance: ALLOPURINOL
  14. ZOCOR [Concomitant]
     Active Substance: SIMVASTATIN
  15. LETAIRIS [Suspect]
     Active Substance: AMBRISENTAN
     Indication: PULMONARY ARTERIAL HYPERTENSION
     Route: 048
     Dates: start: 20100615
  16. AVODART [Concomitant]
     Active Substance: DUTASTERIDE
  17. TYLENOL ARTH [Concomitant]

REACTIONS (3)
  - Gastrointestinal haemorrhage [Unknown]
  - Dizziness [Unknown]
  - Anaemia [Unknown]

NARRATIVE: CASE EVENT DATE: 20100616
